FAERS Safety Report 12760749 (Version 2)
Quarter: 2019Q3

REPORT INFORMATION
  Report Type: Spontaneous
  Country: FR (occurrence: FR)
  Receive Date: 20160919
  Receipt Date: 20190813
  Transmission Date: 20191004
  Serious: Yes (Hospitalization)
  Sender: FDA-Public Use
  Company Number: FR-ALLERGAN-1668989US

PATIENT
  Sex: Female

DRUGS (1)
  1. OZURDEX [Suspect]
     Active Substance: DEXAMETHASONE
     Indication: PRODUCT USED FOR UNKNOWN INDICATION
     Dosage: 0.7 MG, SINGLE
     Route: 021
     Dates: start: 20151211, end: 20151211

REACTIONS (3)
  - Corneal oedema [Recovered/Resolved]
  - Device dislocation [Recovering/Resolving]
  - Corneal opacity [Recovered/Resolved]

NARRATIVE: CASE EVENT DATE: 2016
